FAERS Safety Report 23356434 (Version 2)
Quarter: 2024Q1

REPORT INFORMATION
  Report Type: Spontaneous
  Country: US (occurrence: US)
  Receive Date: 20240102
  Receipt Date: 20240111
  Transmission Date: 20240410
  Serious: Yes (Death, Other)
  Sender: FDA-Public Use
  Company Number: US-ORGANON-O2312USA002802

PATIENT
  Age: 82 Year
  Sex: Female

DRUGS (8)
  1. PROSCAR [Suspect]
     Active Substance: FINASTERIDE
     Dosage: UNK
  2. BACLOFEN [Suspect]
     Active Substance: BACLOFEN
     Dosage: UNK
  3. LISINOPRIL [Suspect]
     Active Substance: LISINOPRIL
     Dosage: UNK
  4. SOTALOL [Suspect]
     Active Substance: SOTALOL
     Dosage: UNK
  5. APIXABAN [Suspect]
     Active Substance: APIXABAN
     Dosage: UNK
  6. KETOROLAC [Suspect]
     Active Substance: KETOROLAC TROMETHAMINE
     Dosage: UNK
  7. TAMSULOSIN HYDROCHLORIDE [Suspect]
     Active Substance: TAMSULOSIN HYDROCHLORIDE
     Dosage: UNK
  8. DONEPEZIL [Suspect]
     Active Substance: DONEPEZIL
     Dosage: UNK

REACTIONS (2)
  - Completed suicide [Fatal]
  - Toxicity to various agents [Fatal]
